FAERS Safety Report 7413452-X (Version None)
Quarter: 2011Q2

REPORT INFORMATION
  Report Type: 
  Country: None (occurrence: None)
  Receive Date: 20110405
  Receipt Date: 20110330
  Transmission Date: 20111010
  Serious: Yes (Hospitalization)
  Sender: FDA-Public Use
  Company Number: 2009-198545-NL

PATIENT
  Age: 24 Year
  Sex: Female
  Weight: 104.3273 kg

DRUGS (1)
  1. NUVARING [Suspect]
     Indication: CONTRACEPTION
     Dates: start: 20051001, end: 20070627

REACTIONS (16)
  - CEREBROVASCULAR ACCIDENT [None]
  - BUNDLE BRANCH BLOCK RIGHT [None]
  - ARTHROPOD BITE [None]
  - PROTHROMBIN TIME PROLONGED [None]
  - METABOLIC SYNDROME [None]
  - FIBRIN D DIMER INCREASED [None]
  - PAIN IN EXTREMITY [None]
  - CAROTID ARTERY STENOSIS [None]
  - INTERNATIONAL NORMALISED RATIO DECREASED [None]
  - PROTHROMBIN TIME SHORTENED [None]
  - CEREBRAL INFARCTION [None]
  - HYPERCHOLESTEROLAEMIA [None]
  - CAROTID ARTERY DISSECTION [None]
  - DIZZINESS [None]
  - CEREBRAL ARTERY STENOSIS [None]
  - PARAESTHESIA [None]
